FAERS Safety Report 16314197 (Version 1)
Quarter: 2019Q2

REPORT INFORMATION
  Report Type: Spontaneous
  Country: US (occurrence: US)
  Receive Date: 20190515
  Receipt Date: 20190515
  Transmission Date: 20190711
  Serious: Yes (Disabling, Other)
  Sender: FDA-Public Use
  Company Number: US-REGENERON PHARMACEUTICALS, INC.-2019-30939

PATIENT

DRUGS (2)
  1. EYLEA [Suspect]
     Active Substance: AFLIBERCEPT
     Dosage: UNK, EVERY 5-6 WEEKS, RIGHT EYE, LAST DOSE
     Route: 031
     Dates: start: 201904, end: 201904
  2. EYLEA [Suspect]
     Active Substance: AFLIBERCEPT
     Indication: MACULAR DEGENERATION
     Dosage: UNK, EVERY 5-6 WEEKS, RIGHT EYE
     Route: 031
     Dates: start: 201903, end: 201904

REACTIONS (11)
  - Headache [Unknown]
  - Blindness unilateral [Unknown]
  - Abnormal sensation in eye [Unknown]
  - Vision blurred [Not Recovered/Not Resolved]
  - Eye swelling [Recovered/Resolved]
  - Malaise [Unknown]
  - Depressed mood [Unknown]
  - Dyspnoea [Unknown]
  - Intraocular pressure decreased [Unknown]
  - Eye pain [Recovered/Resolved]
  - Hypersensitivity [Unknown]

NARRATIVE: CASE EVENT DATE: 201904
